FAERS Safety Report 4717844-9 (Version None)
Quarter: 2005Q3

REPORT INFORMATION
  Report Type: 
  Country: None (occurrence: None)
  Receive Date: 20050720
  Receipt Date: 20050708
  Transmission Date: 20060218
  Serious: Yes (Hospitalization)
  Sender: FDA-Public Use
  Company Number: ES-JNJFOC-20050701644

PATIENT
  Age: 64 Year
  Sex: Male

DRUGS (6)
  1. REMICADE [Suspect]
     Indication: RHEUMATOID ARTHRITIS
     Route: 042
  2. METHOTREXATE [Concomitant]
     Route: 065
  3. DEFLAZACORT [Concomitant]
     Route: 065
  4. INDOMETHACIN [Concomitant]
     Route: 065
  5. RISEDRONATE [Concomitant]
     Route: 065
  6. OMEPRAZOLE [Concomitant]
     Route: 065

REACTIONS (1)
  - BLADDER CANCER [None]
